FAERS Safety Report 15420292 (Version 5)
Quarter: 2019Q1

REPORT INFORMATION
  Report Type: Report from Study
  Country: CN (occurrence: CN)
  Receive Date: 20180924
  Receipt Date: 20190222
  Transmission Date: 20190417
  Serious: Yes (Death, Hospitalization)
  Sender: FDA-Public Use
  Company Number: CN-TAKEDA-2018MPI011821

PATIENT
  Age: 64 Year
  Sex: Male
  Weight: 67 kg

DRUGS (3)
  1. BORTEZOMIB. [Suspect]
     Active Substance: BORTEZOMIB
     Indication: PLASMA CELL MYELOMA
     Dosage: UNK
     Route: 065
  2. DECADRON [Concomitant]
     Active Substance: DEXAMETHASONE
     Indication: PLASMA CELL MYELOMA
     Dosage: 10 MG, UNK
     Route: 042
     Dates: start: 20180424, end: 20180608
  3. ADRIAMYCIN [Concomitant]
     Active Substance: DOXORUBICIN HYDROCHLORIDE
     Indication: PLASMA CELL MYELOMA
     Dosage: 40 MG, UNK
     Route: 042
     Dates: start: 20180424, end: 20180608

REACTIONS (2)
  - Infection [Unknown]
  - Gastrointestinal infection [Fatal]

NARRATIVE: CASE EVENT DATE: 20180615
